FAERS Safety Report 17899715 (Version 1)
Quarter: 2020Q2

REPORT INFORMATION
  Report Type: Spontaneous
  Country: US (occurrence: US)
  Receive Date: 20200615
  Receipt Date: 20200615
  Transmission Date: 20200714
  Serious: Yes (Other)
  Sender: FDA-Public Use
  Company Number: None

PATIENT
  Age: 70 Year
  Sex: Female
  Weight: 77.4 kg

DRUGS (1)
  1. ZOLEDRONIC [Suspect]
     Active Substance: ZOLEDRONIC ACID
     Indication: BONE LOSS
     Route: 042
     Dates: start: 20200602, end: 20200602

REACTIONS (5)
  - Headache [None]
  - Pain in extremity [None]
  - Fatigue [None]
  - Pyrexia [None]
  - Back pain [None]

NARRATIVE: CASE EVENT DATE: 20200602
